FAERS Safety Report 21182287 (Version 2)
Quarter: 2022Q3

REPORT INFORMATION
  Report Type: Other
  Country: US (occurrence: None)
  Receive Date: 20220807
  Receipt Date: 20220810
  Transmission Date: 20221027
  Serious: No
  Sender: FDA-Public Use
  Company Number: US-ROCHE-3152758

PATIENT
  Sex: Male

DRUGS (1)
  1. OCREVUS [Suspect]
     Active Substance: OCRELIZUMAB
     Indication: Relapsing multiple sclerosis
     Dosage: DATE OF TREATMENT: 29/JUN/2020, 29/DEC/2020, 28/JUN/2021, 17/JAN/2022, 18/JUL/2022, INFUSE 300MG IV
     Route: 042

REACTIONS (1)
  - COVID-19 [Not Recovered/Not Resolved]
